FAERS Safety Report 23164385 (Version 1)
Quarter: 2023Q4

REPORT INFORMATION
  Report Type: Spontaneous
  Country: US (occurrence: None)
  Receive Date: 20231108
  Receipt Date: 20231108
  Transmission Date: 20240110
  Serious: Yes (Life-Threatening, Disabling)
  Sender: FDA-Public Use
  Company Number: None

PATIENT
  Age: 47 Year
  Sex: Female
  Weight: 66.6 kg

DRUGS (14)
  1. XULANE [Suspect]
     Active Substance: ETHINYL ESTRADIOL\NORELGESTROMIN
     Indication: Contraception
     Dosage: OTHER QUANTITY : 3 PATCH(ES);?OTHER FREQUENCY : WEEKLY;?
     Route: 062
     Dates: start: 20200511, end: 20230606
  2. IV (via port) Taxol chemotherapy [Concomitant]
  3. IV Benadry [Concomitant]
  4. PEPCID [Concomitant]
     Active Substance: FAMOTIDINE
  5. ONDANSETRON [Concomitant]
     Active Substance: ONDANSETRON
  6. DEXAMETHASONE [Concomitant]
     Active Substance: DEXAMETHASONE
  7. AUBAGIO [Concomitant]
     Active Substance: TERIFLUNOMIDE
  8. TRIPLE MAGNESIUM COMPLEX [Concomitant]
  9. CALCIUM [Concomitant]
     Active Substance: CALCIUM
  10. VITAMIN D3 [Concomitant]
     Active Substance: CHOLECALCIFEROL
  11. B12 cyanocobalamin [Concomitant]
  12. Triple strength melatonin [Concomitant]
  13. LORATADINE [Concomitant]
     Active Substance: LORATADINE
  14. polyethyline glycol powder [Concomitant]

REACTIONS (7)
  - Liver function test increased [None]
  - Rash [None]
  - Breast cyst [None]
  - Inflammatory carcinoma of the breast [None]
  - Metastases to bone [None]
  - Oestrogen receptor assay positive [None]
  - Progesterone receptor assay positive [None]

NARRATIVE: CASE EVENT DATE: 20230125
